FAERS Safety Report 11003274 (Version 1)
Quarter: 2015Q2

REPORT INFORMATION
  Report Type: Spontaneous
  Country: GB (occurrence: None)
  Receive Date: 20150407
  Receipt Date: 20150407
  Transmission Date: 20150821
  Serious: Yes (Death)
  Sender: FDA-Public Use
  Company Number: 20151023

PATIENT
  Sex: Female

DRUGS (1)
  1. METOJECT (METHOTREXATE DISODIUM) [Suspect]
     Active Substance: METHOTREXATE SODIUM
     Dosage: SOLUTION  FOR INJECTION IN PRE-FILLED SYRINGE//

REACTIONS (1)
  - Death [None]
